FAERS Safety Report 16317455 (Version 1)
Quarter: 2019Q2

REPORT INFORMATION
  Report Type: Spontaneous
  Country: AR (occurrence: AR)
  Receive Date: 20190516
  Receipt Date: 20190516
  Transmission Date: 20190711
  Serious: Yes (Death, Hospitalization)
  Sender: FDA-Public Use
  Company Number: AR-ROCHE-2200406

PATIENT
  Age: 68 Year
  Sex: Male

DRUGS (1)
  1. ATEZOLIZUMAB. [Suspect]
     Active Substance: ATEZOLIZUMAB
     Indication: NON-SMALL CELL LUNG CANCER METASTATIC
     Route: 042
     Dates: start: 20180612, end: 20180912

REACTIONS (1)
  - Pathological fracture [Not Recovered/Not Resolved]

NARRATIVE: CASE EVENT DATE: 20181008
